FAERS Safety Report 16223571 (Version 1)
Quarter: 2019Q2

REPORT INFORMATION
  Report Type: Spontaneous
  Country: TW (occurrence: TW)
  Receive Date: 20190422
  Receipt Date: 20190422
  Transmission Date: 20190711
  Serious: Yes (Death)
  Sender: FDA-Public Use
  Company Number: TW-EMD SERONO-9086926

PATIENT
  Age: 32 Year
  Sex: Female
  Weight: 81 kg

DRUGS (5)
  1. OVIDREL [Suspect]
     Active Substance: CHORIOGONADOTROPIN ALFA
     Indication: INFERTILITY
     Route: 058
     Dates: start: 20180621, end: 20180621
  2. MENOPUR [Concomitant]
     Active Substance: FOLLITROPIN\LUTEINIZING HORMONE
     Indication: INFERTILITY
     Dosage: 1PC
     Dates: start: 20180615, end: 20180616
  3. MENOPUR [Concomitant]
     Active Substance: FOLLITROPIN\LUTEINIZING HORMONE
     Dates: start: 20180619, end: 20180620
  4. CORIFOLLITROPIN ALFA. [Concomitant]
     Active Substance: CORIFOLLITROPIN ALFA
     Indication: INFERTILITY
     Dates: start: 20180612
  5. TRIPTORELIN ACETATE [Concomitant]
     Active Substance: TRIPTORELIN ACETATE
     Indication: INFERTILITY
     Dates: start: 20180721, end: 20180722

REACTIONS (1)
  - Ovarian hyperstimulation syndrome [Fatal]

NARRATIVE: CASE EVENT DATE: 20180709
